FAERS Safety Report 8101718-X (Version None)
Quarter: 2012Q1

REPORT INFORMATION
  Report Type: 
  Country: None (occurrence: None)
  Receive Date: 20120131
  Receipt Date: 20120124
  Transmission Date: 20120608
  Serious: Yes (Hospitalization, Other)
  Sender: FDA-Public Use
  Company Number: US-PFIZER INC-2012020678

PATIENT

DRUGS (2)
  1. LIPITOR [Concomitant]
  2. XALATAN [Suspect]
     Dosage: UNK

REACTIONS (1)
  - VASCULAR GRAFT [None]
